FAERS Safety Report 13815771 (Version 1)
Quarter: 2017Q3

REPORT INFORMATION
  Report Type: Report from Study
  Country: CO (occurrence: CO)
  Receive Date: 20170731
  Receipt Date: 20170731
  Transmission Date: 20171127
  Serious: Yes (Death)
  Sender: FDA-Public Use
  Company Number: CO-AMGEN-COLSL2017114353

PATIENT
  Age: 92 Year
  Sex: Male

DRUGS (1)
  1. PROLIA [Suspect]
     Active Substance: DENOSUMAB
     Indication: OSTEOPOROSIS
     Dosage: 60 MG, Q6MO
     Route: 058
     Dates: start: 20160116, end: 20170714

REACTIONS (5)
  - Respiratory disorder [Fatal]
  - Cardiac disorder [Fatal]
  - Bedridden [Unknown]
  - Renal disorder [Fatal]
  - Fall [Unknown]

NARRATIVE: CASE EVENT DATE: 20161222
